FAERS Safety Report 13384729 (Version 1)
Quarter: 2017Q1

REPORT INFORMATION
  Report Type: Spontaneous
  Country: US (occurrence: US)
  Receive Date: 20170329
  Receipt Date: 20170329
  Transmission Date: 20170429
  Serious: No
  Sender: FDA-Public Use
  Company Number: None

PATIENT
  Age: 34 Year
  Sex: Male
  Weight: 72 kg

DRUGS (4)
  1. METHYLPREDNISOLONE 4 MG [Suspect]
     Active Substance: METHYLPREDNISOLONE
     Indication: NASAL SEPTUM DEVIATION
     Dosage: ?          QUANTITY:1 TABLET(S);?
     Route: 048
     Dates: start: 20170323, end: 20170328
  2. METHYLPREDNISOLONE 4 MG [Suspect]
     Active Substance: METHYLPREDNISOLONE
     Indication: DYSPNOEA
     Dosage: ?          QUANTITY:1 TABLET(S);?
     Route: 048
     Dates: start: 20170323, end: 20170328
  3. FLONASE [Concomitant]
     Active Substance: FLUTICASONE PROPIONATE
  4. METHYLPREDNISOLONE 4 MG [Suspect]
     Active Substance: METHYLPREDNISOLONE
     Indication: INFLAMMATION
     Dosage: ?          QUANTITY:1 TABLET(S);?
     Route: 048
     Dates: start: 20170323, end: 20170328

REACTIONS (5)
  - Screaming [None]
  - Thirst [None]
  - Nightmare [None]
  - Dry mouth [None]
  - Night sweats [None]

NARRATIVE: CASE EVENT DATE: 20170327
